FAERS Safety Report 9313972 (Version 2)
Quarter: 2013Q2

REPORT INFORMATION
  Report Type: Spontaneous
  Country: JP (occurrence: JP)
  Receive Date: 20130529
  Receipt Date: 20130610
  Transmission Date: 20140414
  Serious: Yes (Other)
  Sender: FDA-Public Use
  Company Number: JP-009507513-1305JPN015583

PATIENT
  Age: 62 Year
  Sex: Male
  Weight: 61 kg

DRUGS (11)
  1. PEGINTRON [Suspect]
     Indication: CHRONIC HEPATITIS C
     Dosage: 1.5 MICROGRAM PER KILOGRAM, QW
     Route: 058
     Dates: start: 20120228, end: 20120814
  2. REBETOL [Suspect]
     Indication: CHRONIC HEPATITIS C
     Dosage: 800 MG, QD
     Route: 048
     Dates: start: 20120228, end: 20120313
  3. REBETOL [Suspect]
     Dosage: 600 MG, QD
     Route: 048
     Dates: start: 20120314, end: 20120320
  4. REBETOL [Suspect]
     Dosage: 200 MG, QD
     Route: 048
     Dates: start: 20120321, end: 20120619
  5. REBETOL [Suspect]
     Dosage: 400 MG, QD
     Route: 048
     Dates: start: 20120620, end: 20120814
  6. TELAVIC [Suspect]
     Indication: CHRONIC HEPATITIS C
     Dosage: 2250 MG QD
     Route: 048
     Dates: start: 20120208, end: 20120501
  7. TELAVIC [Suspect]
     Dosage: 1500 MG, QD
     Route: 048
     Dates: start: 20120502, end: 20120508
  8. ALLERMIST [Concomitant]
     Indication: CHRONIC SINUSITIS
     Dosage: DAILY DOSE UNKNOWN, PRN
     Route: 045
  9. BEZATOL [Concomitant]
     Indication: HYPERLIPIDAEMIA
     Dosage: 400 MG, QD
     Route: 048
     Dates: start: 20120403
  10. BEZATOL [Concomitant]
     Indication: PROPHYLAXIS
     Dosage: 400 MG, QD
     Route: 048
     Dates: end: 20120814
  11. GASTER (OMEPRAZOLE) [Concomitant]
     Indication: PROPHYLAXIS
     Dosage: 20 MG, QD
     Route: 048
     Dates: start: 20120419, end: 20120814

REACTIONS (1)
  - Erythema multiforme [Recovering/Resolving]
